FAERS Safety Report 9207953 (Version 1)
Quarter: 2013Q2

REPORT INFORMATION
  Report Type: Spontaneous
  Country: RO (occurrence: RO)
  Receive Date: 20130403
  Receipt Date: 20130403
  Transmission Date: 20140414
  Serious: Yes (Hospitalization, Other)
  Sender: FDA-Public Use
  Company Number: RO-ACTAVIS-2013-05335

PATIENT
  Age: 45 Year
  Sex: Male

DRUGS (13)
  1. SERTRALINE HYDROCHLORIDE (UNKNOWN) [Suspect]
     Indication: DEPRESSION
     Dosage: 75 MG, DAILY
     Route: 065
     Dates: start: 201107
  2. SERTRALINE HYDROCHLORIDE (UNKNOWN) [Suspect]
     Dosage: 100 MG, UNKNOWN
     Route: 065
  3. MIRTAZAPINE (UNKNOWN) [Suspect]
     Indication: DEPRESSION
     Dosage: 30 MG, UNKNOWN
     Route: 065
  4. SEROQUEL [Concomitant]
     Indication: DEPRESSION
     Dosage: 300 MG, DAILY
     Route: 065
     Dates: start: 201107
  5. ZYPREXA [Concomitant]
     Indication: DEPRESSION
     Dosage: 10 MG, DAILY
     Route: 065
     Dates: start: 201107
  6. ORFIRIL [Concomitant]
     Indication: DEPRESSION
     Dosage: 500 MG, DAILY
     Route: 065
     Dates: start: 201107
  7. RIVOTRIL [Concomitant]
     Indication: DEPRESSION
     Dosage: 3 MG, DAILY
     Route: 065
  8. RIVOTRIL [Concomitant]
     Dosage: 2.5 MG, DAILY
     Route: 065
  9. DIAZEPAM [Concomitant]
     Indication: DEPRESSION
     Dosage: 40 MG, DAILY
     Route: 065
  10. RISPERIDONE [Concomitant]
     Indication: DEPRESSION
     Dosage: 6 MG, UNKNOWN
     Route: 065
  11. VALPROIC ACID [Concomitant]
     Indication: DEPRESSION
     Dosage: 1000 MG, UNKNOWN
     Route: 065
  12. LEXOTAN [Concomitant]
     Indication: DEPRESSION
     Dosage: 4.5 MG, UNKNOWN
     Route: 065
  13. LEVOMEPROMAZINE [Concomitant]
     Indication: DEPRESSION
     Dosage: 1/4 CAPSULE, UNKNOWN
     Route: 065

REACTIONS (1)
  - Mania [Recovering/Resolving]
